FAERS Safety Report 6297096-1 (Version None)
Quarter: 2009Q3

REPORT INFORMATION
  Report Type: 
  Country: None (occurrence: None)
  Receive Date: 20090724
  Receipt Date: 20090316
  Transmission Date: 20100115
  Serious: Yes (Hospitalization)
  Sender: FDA-Public Use
  Company Number: 2009BI004675

PATIENT
  Age: 49 Year
  Sex: Female

DRUGS (7)
  1. TYSABRI [Suspect]
     Indication: MULTIPLE SCLEROSIS
     Dosage: 300 MG;QM;IV
     Route: 042
     Dates: start: 20071002
  2. ASPIRIN [Concomitant]
  3. BACLOFEN [Concomitant]
  4. NABUMETONE [Concomitant]
  5. AMBIEN [Concomitant]
  6. DIOVAN [Concomitant]
  7. ZYRTEC [Concomitant]

REACTIONS (3)
  - MULTIPLE SCLEROSIS RELAPSE [None]
  - NUCLEAR MAGNETIC RESONANCE IMAGING ABNORMAL [None]
  - PARAESTHESIA [None]
